FAERS Safety Report 11892926 (Version 3)
Quarter: 2016Q3

REPORT INFORMATION
  Report Type: Report from Study
  Country: NL (occurrence: NL)
  Receive Date: 20160106
  Receipt Date: 20160928
  Transmission Date: 20161109
  Serious: Yes (Hospitalization, Other)
  Sender: FDA-Public Use
  Company Number: NL-AMGEN-NLDSL2016000179

PATIENT
  Age: 66 Year
  Sex: Male

DRUGS (2)
  1. ARANESP [Suspect]
     Active Substance: DARBEPOETIN ALFA
     Dosage: UNK
     Route: 058
  2. ARANESP [Suspect]
     Active Substance: DARBEPOETIN ALFA
     Indication: ANAEMIA
     Dosage: 500 MUG/ML (500 MCG/ ML IN 1 ML), Q3WK
     Route: 058

REACTIONS (2)
  - Pneumonia [Unknown]
  - Terminal state [Unknown]

NARRATIVE: CASE EVENT DATE: 20151231
